FAERS Safety Report 7902012-X (Version None)
Quarter: 2011Q4

REPORT INFORMATION
  Report Type: 
  Country: None (occurrence: None)
  Receive Date: 20111108
  Receipt Date: 20111013
  Transmission Date: 20120403
  Serious: Yes (Other)
  Sender: FDA-Public Use
  Company Number: US-GLAXOSMITHKLINE-A0949454A

PATIENT
  Age: 57 Year
  Sex: Female
  Weight: 88 kg

DRUGS (7)
  1. FLOLAN [Suspect]
     Indication: PULMONARY ARTERIAL HYPERTENSION
     Dosage: 42.7NGKM UNKNOWN
     Route: 042
     Dates: start: 20100527
  2. SPIRONOLACTONE [Concomitant]
  3. ALBUTEROL [Concomitant]
  4. WARFARIN SODIUM [Concomitant]
  5. REVATIO [Concomitant]
  6. POTASSIUM [Concomitant]
  7. FUROSEMIDE [Concomitant]

REACTIONS (2)
  - DEVICE RELATED INFECTION [None]
  - DIARRHOEA [None]
